FAERS Safety Report 21006589 (Version 2)
Quarter: 2022Q2

REPORT INFORMATION
  Report Type: Report from Study
  Country: US (occurrence: US)
  Receive Date: 20220624
  Receipt Date: 20220627
  Transmission Date: 20220720
  Serious: Yes (Hospitalization, Other)
  Sender: FDA-Public Use
  Company Number: US-ABBVIE-22K-163-4426892-00

PATIENT
  Sex: Female

DRUGS (1)
  1. IMBRUVICA [Suspect]
     Active Substance: IBRUTINIB
     Indication: Chronic lymphocytic leukaemia
     Route: 048
     Dates: start: 202205

REACTIONS (9)
  - Blood pressure decreased [Unknown]
  - Multiple organ dysfunction syndrome [Unknown]
  - Unevaluable event [Unknown]
  - Faeces soft [Unknown]
  - Peripheral swelling [Unknown]
  - Emotional distress [Unknown]
  - Illness [Unknown]
  - Drug ineffective [Unknown]
  - Diarrhoea [Unknown]
